FAERS Safety Report 4844608-8 (Version None)
Quarter: 2005Q4

REPORT INFORMATION
  Report Type: 
  Country: None (occurrence: None)
  Receive Date: 20051130
  Receipt Date: 20051130
  Transmission Date: 20060501
  Serious: Yes (Other)
  Sender: FDA-Public Use
  Company Number: None

PATIENT
  Sex: Female
  Weight: 100.6985 kg

DRUGS (2)
  1. ENALAPRIL 10MG [Suspect]
     Indication: HYPERTENSION
     Dosage: 10 MG BID
  2. NITROGLYCERIN [Suspect]
     Indication: CORONARY ARTERY DISEASE
     Dosage: 0.4 MG DAILY
     Route: 062

REACTIONS (3)
  - DERMATITIS CONTACT [None]
  - RASH [None]
  - REACTION TO COLOURING [None]
